FAERS Safety Report 9414776 (Version 1)
Quarter: 2013Q3

REPORT INFORMATION
  Report Type: Spontaneous
  Country: US (occurrence: US)
  Receive Date: 20130723
  Receipt Date: 20130723
  Transmission Date: 20140515
  Serious: Yes (Other)
  Sender: FDA-Public Use
  Company Number: US-PFIZER INC-2013209239

PATIENT
  Age: 64 Year
  Sex: Male
  Weight: 78.01 kg

DRUGS (2)
  1. XALATAN [Suspect]
     Indication: GLAUCOMA
     Dosage: ONE DROP IN EACH EYE, 1X/DAY
     Route: 047
     Dates: start: 2012
  2. COMBIGAN [Concomitant]
     Dosage: UNK (IN LEFT EYE)
     Route: 047

REACTIONS (1)
  - Eye disorder [Recovering/Resolving]
